FAERS Safety Report 4334920-3 (Version None)
Quarter: 2004Q2

REPORT INFORMATION
  Report Type: 
  Country: None (occurrence: None)
  Receive Date: 20040408
  Receipt Date: 20030918
  Transmission Date: 20050107
  Serious: Yes (Death, Hospitalization)
  Sender: FDA-Public Use
  Company Number: PHFR2003GB03637

PATIENT
  Age: 27 Year
  Sex: Male

DRUGS (6)
  1. AMOXICILLIN AND CLAVULANATE POTASSIUM [Concomitant]
  2. AMLODIPINE [Concomitant]
  3. AMISULPRIDE [Concomitant]
     Indication: SCHIZOPHRENIA
     Dosage: 100 MG/DAY
     Route: 048
     Dates: start: 20020101
  4. AUGMENTIN [Concomitant]
     Dosage: 1.2 G/DAY
     Route: 042
     Dates: start: 20030910
  5. METRONIDAZOLE [Concomitant]
     Dosage: 500 MG/DAY
     Route: 042
     Dates: start: 20030910
  6. CLOZARIL [Suspect]
     Indication: SCHIZOPHRENIA
     Dosage: 700MG/DAY
     Route: 048
     Dates: start: 19970101, end: 20030909

REACTIONS (13)
  - CARDIAC DISORDER [None]
  - CARDIAC VENTRICULAR DISORDER [None]
  - CIRCULATORY COLLAPSE [None]
  - COUGH [None]
  - DRUG LEVEL INCREASED [None]
  - DRUG TOXICITY [None]
  - DYSPNOEA [None]
  - HYPERHIDROSIS [None]
  - LOWER RESPIRATORY TRACT INFECTION [None]
  - PULMONARY CONGESTION [None]
  - PULMONARY OEDEMA [None]
  - TACHYCARDIA [None]
  - VENOOCCLUSIVE LIVER DISEASE [None]
